FAERS Safety Report 15656695 (Version 1)
Quarter: 2018Q4

REPORT INFORMATION
  Report Type: Spontaneous
  Country: US (occurrence: US)
  Receive Date: 20181126
  Receipt Date: 20181126
  Transmission Date: 20190205
  Serious: Yes (Other)
  Sender: FDA-Public Use
  Company Number: US-ALLERGAN-1854456US

PATIENT
  Sex: Female

DRUGS (1)
  1. KADIAN [Suspect]
     Active Substance: MORPHINE SULFATE
     Indication: PRODUCT USED FOR UNKNOWN INDICATION
     Route: 065

REACTIONS (4)
  - Blood blister [Unknown]
  - Paradoxical drug reaction [Unknown]
  - Nausea [Unknown]
  - Drug ineffective [Unknown]
